FAERS Safety Report 23398120 (Version 1)
Quarter: 2024Q1

REPORT INFORMATION
  Report Type: Spontaneous
  Country: None (occurrence: US)
  Receive Date: 20240112
  Receipt Date: 20240112
  Transmission Date: 20240410
  Serious: Yes (Other)
  Sender: FDA-Public Use
  Company Number: US-Alva-Amco Pharmacal Companies, Inc.-2151032

PATIENT
  Sex: Male

DRUGS (1)
  1. DIUREX WATER PILLS [Suspect]
     Active Substance: CAFFEINE\MAGNESIUM SALICYLATE
     Indication: Polyuria
     Route: 048
     Dates: start: 20240101, end: 20240103

REACTIONS (1)
  - Haematemesis [Unknown]

NARRATIVE: CASE EVENT DATE: 20240103
